FAERS Safety Report 11038862 (Version 1)
Quarter: 2015Q2

REPORT INFORMATION
  Report Type: Report from Study
  Country: US (occurrence: US)
  Receive Date: 20150416
  Receipt Date: 20150416
  Transmission Date: 20150821
  Serious: Yes (Hospitalization, Other)
  Sender: FDA-Public Use
  Company Number: US-GILEAD-2015-0148603

PATIENT
  Age: 64 Year
  Sex: Female

DRUGS (18)
  1. OMEPRAZOLE. [Concomitant]
     Active Substance: OMEPRAZOLE
  2. IPRATROPIUM [Concomitant]
     Active Substance: IPRATROPIUM
  3. CALCIUM CARBONATE. [Concomitant]
     Active Substance: CALCIUM CARBONATE
  4. MAGNESIUM OXIDE. [Concomitant]
     Active Substance: MAGNESIUM OXIDE
  5. FLUTICASONE [Concomitant]
     Active Substance: FLUTICASONE\FLUTICASONE PROPIONATE
  6. AMBRISENTAN [Suspect]
     Active Substance: AMBRISENTAN
     Indication: PULMONARY ARTERIAL HYPERTENSION
     Dosage: 10 MG, QD
     Route: 048
     Dates: start: 201503, end: 20150325
  7. KCL [Concomitant]
     Active Substance: POTASSIUM CHLORIDE
  8. CHOLECALCIFEROL [Concomitant]
     Active Substance: CHOLECALCIFEROL
  9. CETIRIZINE [Concomitant]
     Active Substance: CETIRIZINE HYDROCHLORIDE
  10. CYANOCOBALAMIN. [Concomitant]
     Active Substance: CYANOCOBALAMIN
  11. SILDENAFIL. [Concomitant]
     Active Substance: SILDENAFIL
  12. ALBUTEROL                          /00139501/ [Concomitant]
     Active Substance: ALBUTEROL
  13. DIGOXIN. [Concomitant]
     Active Substance: DIGOXIN
  14. METOLAZONE. [Concomitant]
     Active Substance: METOLAZONE
  15. SPIRONOLACTONE. [Concomitant]
     Active Substance: SPIRONOLACTONE
  16. METOPROLOL [Concomitant]
     Active Substance: METOPROLOL
  17. INSULIN NPH                        /01223208/ [Concomitant]
  18. LASIX [Concomitant]
     Active Substance: FUROSEMIDE

REACTIONS (2)
  - Generalised oedema [Unknown]
  - Hepatic encephalopathy [Unknown]
